FAERS Safety Report 25278878 (Version 1)
Quarter: 2025Q2

REPORT INFORMATION
  Report Type: Spontaneous
  Country: US (occurrence: None)
  Receive Date: 20250507
  Receipt Date: 20250507
  Transmission Date: 20250717
  Serious: Yes (Hospitalization)
  Sender: FDA-CTU
  Company Number: None

PATIENT
  Age: 60 Year
  Sex: Female

DRUGS (1)
  1. CAPECITABINE [Suspect]
     Active Substance: CAPECITABINE
     Indication: Anal cancer
     Dosage: FREQUENCY : TWICE A DAY;?

REACTIONS (6)
  - Headache [None]
  - Vomiting [None]
  - Diarrhoea [None]
  - Muscle spasms [None]
  - Hypophagia [None]
  - Post-traumatic stress disorder [None]
